FAERS Safety Report 5483144-5 (Version None)
Quarter: 2007Q4

REPORT INFORMATION
  Report Type: 
  Country: None (occurrence: None)
  Receive Date: 20071005
  Receipt Date: 20070920
  Transmission Date: 20080405
  Serious: Yes (Other)
  Sender: FDA-Public Use
  Company Number: S07-ESP-05278-01

PATIENT
  Age: 45 Year
  Sex: Female

DRUGS (5)
  1. ESCITALOPRAM [Suspect]
     Indication: OBSESSIVE-COMPULSIVE DISORDER
     Dates: start: 20060901, end: 20070101
  2. ESCITALOPRAM [Suspect]
     Indication: OBSESSIVE-COMPULSIVE DISORDER
     Dosage: 50 MG QD PO
     Route: 048
     Dates: start: 20070101, end: 20070101
  3. ESCITALOPRAM [Suspect]
     Indication: OBSESSIVE-COMPULSIVE DISORDER
     Dates: start: 20070101
  4. TRAZODONE HCL [Suspect]
     Indication: OBSESSIVE-COMPULSIVE DISORDER
     Dosage: 25 MG QD PO
     Route: 048
     Dates: start: 20070101
  5. BENZODIAZEPINES [Concomitant]

REACTIONS (5)
  - DRUG INTERACTION [None]
  - GALACTORRHOEA [None]
  - MENSTRUATION IRREGULAR [None]
  - OVERDOSE [None]
  - WEIGHT INCREASED [None]
